FAERS Safety Report 18223918 (Version 1)
Quarter: 2020Q3

REPORT INFORMATION
  Report Type: Spontaneous
  Country: US (occurrence: US)
  Receive Date: 20200902
  Receipt Date: 20200902
  Transmission Date: 20201103
  Serious: Yes (Death, Hospitalization, Other)
  Sender: FDA-Public Use
  Company Number: US-PURDUE-USA-2020-0164135

PATIENT
  Sex: Male

DRUGS (16)
  1. MS CONTIN [Suspect]
     Active Substance: MORPHINE SULFATE
     Indication: BACK PAIN
     Dosage: UNK
     Route: 048
     Dates: start: 20010422
  2. MS CONTIN [Suspect]
     Active Substance: MORPHINE SULFATE
     Indication: ARTHRALGIA
  3. MORPHINE SULFATE EXTENDED?RELEASE TABLETS (RHODES 74?769, 74?862) [Suspect]
     Active Substance: MORPHINE SULFATE
     Indication: GROIN PAIN
  4. OXYCONTIN [Suspect]
     Active Substance: OXYCODONE HYDROCHLORIDE
     Indication: GROIN PAIN
  5. MORPHINE SULFATE EXTENDED?RELEASE TABLETS (RHODES 74?769, 74?862) [Suspect]
     Active Substance: MORPHINE SULFATE
     Indication: BACK PAIN
     Dosage: UNK
     Route: 048
     Dates: start: 20010422
  6. OXYCODONE HCL TABLETS (RHODES 91?490) [Suspect]
     Active Substance: OXYCODONE HYDROCHLORIDE
     Indication: PRODUCT USED FOR UNKNOWN INDICATION
     Route: 048
  7. PALLADONE [Suspect]
     Active Substance: HYDROMORPHONE HYDROCHLORIDE
     Indication: PRODUCT USED FOR UNKNOWN INDICATION
     Route: 065
  8. HYDROCODONE BITARTRATE/ACETAMINOPHEN [Suspect]
     Active Substance: ACETAMINOPHEN\HYDROCODONE BITARTRATE
     Indication: PRODUCT USED FOR UNKNOWN INDICATION
     Route: 048
  9. MORPHINE SULFATE EXTENDED?RELEASE TABLETS (RHODES 74?769, 74?862) [Suspect]
     Active Substance: MORPHINE SULFATE
     Indication: ARTHRALGIA
  10. COUMADIN [Concomitant]
     Active Substance: WARFARIN SODIUM
     Indication: PRODUCT USED FOR UNKNOWN INDICATION
     Route: 065
  11. OXYCODONE HCL CR TABLETS (SIMILAR TO NDA 22?272) [Suspect]
     Active Substance: OXYCODONE HYDROCHLORIDE
     Indication: PRODUCT USED FOR UNKNOWN INDICATION
     Route: 048
  12. TRAMADOL. [Suspect]
     Active Substance: TRAMADOL
     Indication: PRODUCT USED FOR UNKNOWN INDICATION
     Route: 048
  13. OXYCONTIN [Suspect]
     Active Substance: OXYCODONE HYDROCHLORIDE
     Indication: ARTHRALGIA
  14. MS CONTIN [Suspect]
     Active Substance: MORPHINE SULFATE
     Indication: GROIN PAIN
  15. OXYCONTIN [Suspect]
     Active Substance: OXYCODONE HYDROCHLORIDE
     Indication: BACK PAIN
     Dosage: UNK
     Route: 048
     Dates: start: 20010422
  16. OXYCODONE/ ACETAMINOPHEN TABLETS [Suspect]
     Active Substance: ACETAMINOPHEN\OXYCODONE HYDROCHLORIDE
     Indication: PRODUCT USED FOR UNKNOWN INDICATION
     Route: 048

REACTIONS (36)
  - Carotid artery stenosis [Unknown]
  - Hallucination [Unknown]
  - Coma [Unknown]
  - Spinal laminectomy [Unknown]
  - Catheterisation cardiac [Unknown]
  - Hip fracture [Unknown]
  - Hypoaesthesia [Unknown]
  - Atrial fibrillation [Unknown]
  - Cellulitis [Unknown]
  - Diverticulum [Unknown]
  - Drug abuse [Unknown]
  - Spinal osteoarthritis [Unknown]
  - Confusional state [Unknown]
  - Insomnia [Unknown]
  - Gastroenteritis vibrio [Unknown]
  - Rotator cuff syndrome [Unknown]
  - Sleep apnoea syndrome [Unknown]
  - Knee arthroplasty [Unknown]
  - Drug dependence [Unknown]
  - Cardiomegaly [Unknown]
  - Diabetes mellitus [Unknown]
  - Abdominal pain upper [Unknown]
  - Oedema [Unknown]
  - Constipation [Unknown]
  - Vomiting [Unknown]
  - Drug withdrawal syndrome [Unknown]
  - Cerebrovascular accident [Fatal]
  - Overdose [Unknown]
  - Dyspnoea [Unknown]
  - Carpal tunnel syndrome [Unknown]
  - Anaemia [Unknown]
  - Dysphagia [Unknown]
  - Dizziness [Unknown]
  - Deafness unilateral [Unknown]
  - Lymphoedema [Unknown]
  - Gout [Unknown]

NARRATIVE: CASE EVENT DATE: 1985
